FAERS Safety Report 18246542 (Version 1)
Quarter: 2020Q3

REPORT INFORMATION
  Report Type: Spontaneous
  Country: US (occurrence: US)
  Receive Date: 20200909
  Receipt Date: 20200909
  Transmission Date: 20201103
  Serious: Yes (Death)
  Sender: FDA-Public Use
  Company Number: None

PATIENT
  Age: 88 Year
  Sex: Male
  Weight: 111.5 kg

DRUGS (12)
  1. VITAMIN B12 [Concomitant]
     Active Substance: CYANOCOBALAMIN
  2. ERLEADA [Suspect]
     Active Substance: APALUTAMIDE
     Indication: BONE CANCER
     Route: 048
     Dates: start: 20200818, end: 20200909
  3. MELOXICAM                                                   MELOXICAM [Concomitant]
     Active Substance: MELOXICAM
  4. FERROUS SULFATE IRON [Concomitant]
  5. LOSARTAN POTASSIUM. [Concomitant]
     Active Substance: LOSARTAN POTASSIUM
  6. REMERON [Concomitant]
     Active Substance: MIRTAZAPINE
  7. XGEVA [Concomitant]
     Active Substance: DENOSUMAB
  8. LUPRON DEPOT (3?MONTH) [Concomitant]
  9. LANSOPRAZOLE. [Concomitant]
     Active Substance: LANSOPRAZOLE
  10. VITAMIN D3 [Concomitant]
     Active Substance: CHOLECALCIFEROL
  11. HYDROCODONE?ACETAMINOPHEN [Concomitant]
     Active Substance: ACETAMINOPHEN\HYDROCODONE
  12. ASPIRIN EC [Concomitant]
     Active Substance: ASPIRIN

REACTIONS (1)
  - Death [None]

NARRATIVE: CASE EVENT DATE: 20200909
